FAERS Safety Report 17167672 (Version 9)
Quarter: 2020Q2

REPORT INFORMATION
  Report Type: Report from Study
  Country: US (occurrence: US)
  Receive Date: 20191218
  Receipt Date: 20200625
  Transmission Date: 20200713
  Serious: Yes (Hospitalization, Other)
  Sender: FDA-Public Use
  Company Number: NVSC2019US071943

PATIENT
  Age: 72 Year
  Sex: Male

DRUGS (5)
  1. ENTRESTO [Suspect]
     Active Substance: SACUBITRIL\VALSARTAN
     Indication: CARDIAC FAILURE
     Dosage: 1 DF (24/26 MG), QD
     Route: 065
  2. ENTRESTO [Suspect]
     Active Substance: SACUBITRIL\VALSARTAN
     Indication: CARDIAC FAILURE CHRONIC
     Dosage: 1 DF (59 MG), BID
     Route: 048
     Dates: start: 20191101
  3. AMIODARONE [Concomitant]
     Active Substance: AMIODARONE
     Indication: PRODUCT USED FOR UNKNOWN INDICATION
     Dosage: UNK
     Route: 065
  4. ENTRESTO [Suspect]
     Active Substance: SACUBITRIL\VALSARTAN
     Indication: CARDIAC FAILURE
     Dosage: 1 DF (24/26 MG), BID
     Route: 048
     Dates: start: 20191201
  5. ENTRESTO [Suspect]
     Active Substance: SACUBITRIL\VALSARTAN
     Indication: CARDIAC FAILURE CONGESTIVE
     Dosage: 1 DF (24/26 MG), BID
     Route: 048
     Dates: start: 20191212

REACTIONS (25)
  - Parosmia [Unknown]
  - Weight decreased [Recovering/Resolving]
  - Ejection fraction abnormal [Recovering/Resolving]
  - Hypertension [Unknown]
  - Intervertebral disc degeneration [Recovering/Resolving]
  - Dyspnoea [Recovering/Resolving]
  - Inappropriate schedule of product administration [Unknown]
  - Taste disorder [Unknown]
  - Back pain [Unknown]
  - Hypotension [Recovered/Resolved]
  - Gastrointestinal haemorrhage [Recovering/Resolving]
  - Pulmonary oedema [Recovering/Resolving]
  - Sinusitis [Recovering/Resolving]
  - Prescribed underdose [Unknown]
  - Dizziness [Recovered/Resolved]
  - Bronchitis [Recovering/Resolving]
  - Decreased appetite [Unknown]
  - Joint swelling [Unknown]
  - Muscle spasms [Unknown]
  - Cough [Not Recovered/Not Resolved]
  - Atrial fibrillation [Unknown]
  - Fall [Unknown]
  - Spinal pain [Unknown]
  - Haemoglobin decreased [Recovering/Resolving]
  - Contusion [Unknown]

NARRATIVE: CASE EVENT DATE: 20191114
